FAERS Safety Report 4979488-3 (Version None)
Quarter: 2006Q2

REPORT INFORMATION
  Report Type: 
  Country: None (occurrence: None)
  Receive Date: 20060418
  Receipt Date: 20060331
  Transmission Date: 20061013
  Serious: Yes (Life-Threatening, Hospitalization)
  Sender: FDA-Public Use
  Company Number: DE200601003005

PATIENT
  Age: 51 Year
  Sex: Female
  Weight: 71 kg

DRUGS (6)
  1. CYMBALTA [Suspect]
     Indication: DEPRESSION
     Dosage: SEE IMAGE
     Route: 048
     Dates: start: 20050902
  2. CYMBALTA [Suspect]
     Indication: DEPRESSION
     Dosage: SEE IMAGE
     Route: 048
     Dates: start: 20050902
  3. CYMBALTA [Suspect]
     Indication: DEPRESSION
     Dosage: SEE IMAGE
     Route: 048
     Dates: start: 20050902
  4. OXYCODONE HCL [Concomitant]
  5. BERODUAL (FENOTEROL HYDROBROMIDE, IPRATROPIUM BROMIDE) [Concomitant]
  6. LEVOTHYROXINE SODIUM [Concomitant]

REACTIONS (4)
  - DRUG INTERACTION [None]
  - HYPERTENSION [None]
  - HYPERTENSIVE CRISIS [None]
  - WHITE BLOOD CELL COUNT INCREASED [None]
